FAERS Safety Report 18736418 (Version 1)
Quarter: 2021Q1

REPORT INFORMATION
  Report Type: Spontaneous
  Country: IE (occurrence: IE)
  Receive Date: 20210113
  Receipt Date: 20210113
  Transmission Date: 20210419
  Serious: Yes (Life-Threatening, Hospitalization, Other)
  Sender: FDA-Public Use
  Company Number: IE-TEVA-2021-IE-1867636

PATIENT
  Age: 23 Year
  Sex: Male
  Weight: 95.34 kg

DRUGS (5)
  1. CLARITHROMYCIN (GENERIC) [Suspect]
     Active Substance: CLARITHROMYCIN
     Indication: HELICOBACTER INFECTION
     Dosage: 1000 MILLIGRAM DAILY; ALSO REPORTED THERAPY START DATE 05/DEC/2020.
     Route: 048
     Dates: start: 20201207, end: 20201219
  2. PANTOFLUX 40 MG GASTRO?RESISTANT TABLETS [Suspect]
     Active Substance: PANTOPRAZOLE SODIUM
     Indication: DUODENAL ULCER
  3. PANTOFLUX 40 MG GASTRO?RESISTANT TABLETS [Suspect]
     Active Substance: PANTOPRAZOLE SODIUM
     Indication: GASTRITIS
     Dosage: 40 MG ,ABOUT 11 WEEKS
     Route: 048
     Dates: start: 20200924, end: 20201207
  4. PANTOFLUX 40 MG GASTRO?RESISTANT TABLETS [Suspect]
     Active Substance: PANTOPRAZOLE SODIUM
     Indication: HELICOBACTER INFECTION
     Dosage: UNIT DOSE :40 MG ,ALSO REPORTED AS 40 MG BD FOR 2 WEEKS THEN ONCE DAILY FOR 4 WEEKS. START DATE ALSO
     Route: 048
     Dates: start: 20201207
  5. PINAMOX 500 MG HARD CAPSULES [Suspect]
     Active Substance: AMOXICILLIN
     Indication: HELICOBACTER INFECTION
     Dosage: 1000 MILLIGRAM DAILY; START DATE ALSO REPORTED AS 05/DEC/2020
     Route: 048
     Dates: start: 20201207, end: 20201219

REACTIONS (6)
  - Anxiety [Not Recovered/Not Resolved]
  - Panic attack [Unknown]
  - Psychotic disorder [Unknown]
  - Derealisation [Not Recovered/Not Resolved]
  - Nervous system disorder [Unknown]
  - Paranoia [Not Recovered/Not Resolved]

NARRATIVE: CASE EVENT DATE: 20201213
